FAERS Safety Report 25157416 (Version 1)
Quarter: 2025Q2

REPORT INFORMATION
  Report Type: Report from Study
  Country: CA (occurrence: CA)
  Receive Date: 20250403
  Receipt Date: 20250403
  Transmission Date: 20250716
  Serious: Yes (Other)
  Sender: MYLAN
  Company Number: CA-MYLANLABS-2025M1027580

PATIENT
  Age: 27 Year
  Sex: Male

DRUGS (2)
  1. CLOZAPINE [Suspect]
     Active Substance: CLOZAPINE
     Indication: Product used for unknown indication
     Dates: start: 20250225, end: 20250310
  2. CLOZAPINE [Suspect]
     Active Substance: CLOZAPINE
     Dates: start: 20250311, end: 20250327

REACTIONS (3)
  - Myocarditis [Unknown]
  - Troponin decreased [Unknown]
  - Eosinophil count increased [Unknown]

NARRATIVE: CASE EVENT DATE: 20250313
